FAERS Safety Report 10703471 (Version 1)
Quarter: 2015Q1

REPORT INFORMATION
  Report Type: Spontaneous
  Country: IT (occurrence: None)
  Receive Date: 20150108
  Receipt Date: 20150108
  Transmission Date: 20150721
  Serious: Yes (Other)
  Sender: FDA-Public Use
  Company Number: 2693279

PATIENT
  Age: 62 Year
  Sex: Female

DRUGS (2)
  1. FOLINIC ACID [Concomitant]
     Active Substance: LEUCOVORIN
  2. OXALIPLATIN. [Suspect]
     Active Substance: OXALIPLATIN
     Indication: ADENOCARCINOMA OF COLON
     Dosage: TOTAL?(NOT OTHERWISE SPECIFIED)
     Route: 042
     Dates: start: 20140514, end: 20140514

REACTIONS (5)
  - Hypersensitivity [None]
  - Pruritus [None]
  - Flushing [None]
  - Local swelling [None]
  - Infusion related reaction [None]

NARRATIVE: CASE EVENT DATE: 20140514
